FAERS Safety Report 15627939 (Version 1)
Quarter: 2018Q4

REPORT INFORMATION
  Report Type: Report from Study
  Country: US (occurrence: US)
  Receive Date: 20181116
  Receipt Date: 20181116
  Transmission Date: 20190205
  Serious: Yes (Hospitalization, Other)
  Sender: FDA-Public Use
  Company Number: US-GILEAD-2018-0374687

PATIENT
  Age: 37 Year
  Sex: Female

DRUGS (13)
  1. XARELTO [Concomitant]
     Active Substance: RIVAROXABAN
  2. ALBUTEROL [SALBUTAMOL] [Concomitant]
     Active Substance: ALBUTEROL
  3. VENTOLIN [Concomitant]
     Active Substance: ALBUTEROL SULFATE
  4. PROPRANOLOL [Concomitant]
     Active Substance: PROPRANOLOL HYDROCHLORIDE
  5. TOBRAMYCIN. [Concomitant]
     Active Substance: TOBRAMYCIN
  6. FLUOROURACIL. [Concomitant]
     Active Substance: FLUOROURACIL
  7. PRAMIPEXOLE. [Concomitant]
     Active Substance: PRAMIPEXOLE
  8. VITAMIN D2 [Concomitant]
     Active Substance: ERGOCALCIFEROL
  9. OXALIPLATIN. [Concomitant]
     Active Substance: OXALIPLATIN
  10. CYMBALTA [Concomitant]
     Active Substance: DULOXETINE HYDROCHLORIDE
  11. CREON [Concomitant]
     Active Substance: PANCRELIPASE AMYLASE\PANCRELIPASE LIPASE\PANCRELIPASE PROTEASE
  12. AZTREONAM LYSINE [Suspect]
     Active Substance: AZTREONAM LYSINE
     Indication: CYSTIC FIBROSIS
     Dosage: 1 DF, TID X 28, OFF 28
     Route: 055
     Dates: start: 20140107
  13. PULMOZYME [Concomitant]
     Active Substance: DORNASE ALFA

REACTIONS (1)
  - Cystic fibrosis [Unknown]
